FAERS Safety Report 8550459-3 (Version None)
Quarter: 2012Q3

REPORT INFORMATION
  Report Type: 
  Country: None (occurrence: None)
  Receive Date: 20120730
  Receipt Date: 20120716
  Transmission Date: 20120928
  Serious: Yes (Hospitalization, Other)
  Sender: FDA-Public Use
  Company Number: FR-ELI_LILLY_AND_COMPANY-FR201205004384

PATIENT
  Sex: Female

DRUGS (9)
  1. VALIUM [Concomitant]
     Dosage: 30 MG, QD
     Route: 048
  2. PROZAC [Suspect]
     Dosage: UNK
     Route: 048
     Dates: end: 20120322
  3. ALPRAZOLAM [Concomitant]
  4. PROZAC [Suspect]
     Dosage: 8 DF, QD
     Route: 048
  5. TERCIAN [Concomitant]
     Dosage: 100 MG, UNKNOWN
     Route: 048
  6. LEPTICUR [Concomitant]
     Dosage: 10 MG, PRN
  7. PROZAC [Suspect]
     Indication: DEPRESSION
     Dosage: UNK
     Route: 048
     Dates: start: 20090701
  8. DOXYCYCLINE HCL [Concomitant]
     Dosage: 1 DF, QD
  9. THERALENE [Concomitant]

REACTIONS (6)
  - SEROTONIN SYNDROME [None]
  - DRUG WITHDRAWAL SYNDROME [None]
  - INTENTIONAL OVERDOSE [None]
  - ENCEPHALOPATHY [None]
  - DEPRESSION [None]
  - ANXIETY [None]
